FAERS Safety Report 4834301-X (Version None)
Quarter: 2005Q4

REPORT INFORMATION
  Report Type: 
  Country: None (occurrence: None)
  Receive Date: 20051114
  Receipt Date: 20051103
  Transmission Date: 20060501
  Serious: Yes (Congenital Anomaly, Other)
  Sender: FDA-Public Use
  Company Number: 2005151340

PATIENT
  Sex: Male

DRUGS (3)
  1. CYTOTEC [Suspect]
     Indication: LABOUR INDUCTION
     Dosage: 25 MCG (25 MCG, VAGINAL
     Route: 067
     Dates: start: 20041012, end: 20041013
  2. CERVIDIL [Suspect]
     Indication: LABOUR INDUCTION
     Dosage: VAGINAL
     Route: 067
     Dates: start: 20041013
  3. AMBIEN [Concomitant]

REACTIONS (8)
  - CAESAREAN SECTION [None]
  - CEREBRAL PALSY [None]
  - DEVELOPMENTAL DELAY [None]
  - DRUG EXPOSURE DURING PREGNANCY [None]
  - DRUG INTERACTION [None]
  - FOETAL HEART RATE ABNORMAL [None]
  - GROWTH RETARDATION [None]
  - NEONATAL HYPOXIA [None]
